FAERS Safety Report 9222320 (Version 3)
Quarter: 2013Q2

REPORT INFORMATION
  Report Type: Spontaneous
  Country: CH (occurrence: None)
  Receive Date: 20130408
  Receipt Date: 20130501
  Transmission Date: 20140414
  Serious: Yes (Death, Hospitalization)
  Sender: FDA-Public Use
  Company Number: UTC-030280

PATIENT
  Age: 71 Year
  Sex: Female

DRUGS (10)
  1. REMODULIN [Suspect]
     Indication: PRODUCT USED FOR UNKNOWN INDICATION
     Dosage: 36 UG/KG (0.025 UG/KG, 1 IN 1 MIN), INTRAVENOUS DRIP
     Route: 041
     Dates: start: 20130221
  2. MARCOUMAR (PHENPROCOUMON) (TABLET) (PHENPROCOUMON) [Suspect]
     Indication: COR PULMONALE
     Dosage: 3 MG (3 MG, 1 IN 1 D), ORAL
     Route: 048
     Dates: start: 200802
  3. TRACLEER (BOSENTAN) (COATED TABLET) [Concomitant]
  4. REVATIO (SILDENAFIL CITRATE) (UNKNOWN) (SILDENAFIL) [Concomitant]
  5. ALDACTONE (SPIRONOLACTONE) (COATED TABLET) [Concomitant]
  6. TOREM (TORASEMIDE) (TABLET) [Concomitant]
  7. CONDROSULF (CHONDROITIN SULFATE SODIUM) (UNKNOWN) [Concomitant]
  8. PANTOPRAZOL (PANTOPRAZOLE SODIUM) (UNKNOWN) [Concomitant]
  9. KCL RETARD (POTASSIUM CHLORIDE) (UNKNOWN) [Concomitant]
  10. SYMBICORT (BUDESONIDE W/FORMOTEROL FUMARATE) (UNKNOWN) [Concomitant]

REACTIONS (7)
  - Nausea [None]
  - Diarrhoea [None]
  - Cerebrovascular disorder [None]
  - Atrial fibrillation [None]
  - Headache [None]
  - Subdural haematoma [None]
  - Drug interaction [None]
